FAERS Safety Report 4708443-3 (Version None)
Quarter: 2005Q3

REPORT INFORMATION
  Report Type: 
  Country: None (occurrence: None)
  Receive Date: 20050707
  Receipt Date: 20050628
  Transmission Date: 20060218
  Serious: Yes (Disabling)
  Sender: FDA-Public Use
  Company Number: GB-BRISTOL-MYERS SQUIBB COMPANY-13017686

PATIENT
  Age: 55 Year
  Sex: Female
  Weight: 89 kg

DRUGS (10)
  1. PRAVASTATIN SODIUM [Suspect]
     Indication: BLOOD CHOLESTEROL INCREASED
     Route: 048
     Dates: start: 20050523, end: 20050606
  2. ATORVASTATIN CALCIUM [Suspect]
     Indication: BLOOD CHOLESTEROL INCREASED
     Route: 048
     Dates: start: 20040301, end: 20050523
  3. LANTUS [Concomitant]
     Route: 058
  4. GLICLAZIDE [Concomitant]
  5. CACIT [Concomitant]
  6. ALENDRONATE [Concomitant]
  7. DIATRIZOATE SODIUM [Concomitant]
  8. METFORMIN HCL [Concomitant]
  9. MIZOLASTINE [Concomitant]
  10. ASPIRIN [Concomitant]

REACTIONS (2)
  - CEREBROVASCULAR ACCIDENT [None]
  - DECREASED INSULIN REQUIREMENT [None]
